FAERS Safety Report 10193945 (Version 2)
Quarter: 2018Q4

REPORT INFORMATION
  Report Type: Report from Study
  Country: US (occurrence: US)
  Receive Date: 20140524
  Receipt Date: 20181205
  Transmission Date: 20190204
  Serious: Yes (Hospitalization, Other)
  Sender: FDA-Public Use
  Company Number: US-SANOFI-AVENTIS-2013SA073021

PATIENT
  Age: 75 Year
  Sex: Female

DRUGS (5)
  1. HUMALOG [Suspect]
     Active Substance: INSULIN LISPRO
     Dosage: UNK
     Route: 065
  2. INSULIN GLARGINE [Suspect]
     Active Substance: INSULIN GLARGINE
     Indication: TYPE 2 DIABETES MELLITUS
     Dosage: 40-41 UNITS, QD
     Route: 058
  3. INSULIN GLARGINE [Suspect]
     Active Substance: INSULIN GLARGINE
     Dosage: 14 IU, QD
     Route: 058
  4. METFORMIN [Concomitant]
     Active Substance: METFORMIN HYDROCHLORIDE
     Dosage: UNK
     Route: 065
  5. INSULIN GLARGINE [Suspect]
     Active Substance: INSULIN GLARGINE
     Dosage: 35 IU, QD
     Route: 058

REACTIONS (12)
  - Cancer surgery [Unknown]
  - Malaise [Not Recovered/Not Resolved]
  - Spinal operation [Unknown]
  - Visual impairment [Not Recovered/Not Resolved]
  - Muscle tightness [Recovered/Resolved]
  - Blood glucose increased [Unknown]
  - Lymphoedema [Not Recovered/Not Resolved]
  - Muscle spasms [Recovered/Resolved]
  - Cataract [Not Recovered/Not Resolved]
  - Thinking abnormal [Unknown]
  - Blood glucose increased [Not Recovered/Not Resolved]
  - Glycosylated haemoglobin increased [Not Recovered/Not Resolved]
